FAERS Safety Report 5361111-X (Version None)
Quarter: 2007Q2

REPORT INFORMATION
  Report Type: 
  Country: None (occurrence: None)
  Receive Date: 20070614
  Receipt Date: 20070601
  Transmission Date: 20071010
  Serious: Yes (Other)
  Sender: FDA-Public Use
  Company Number: XOLEGE0700006

PATIENT
  Age: 84 Year
  Sex: Male

DRUGS (5)
  1. XOLEGEL [Suspect]
     Dosage: 400 MG, TID, ORAL
     Route: 048
  2. LOVASTATIN [Concomitant]
  3. HYDROCORTISONE (HYDROCORTISONE) [Concomitant]
  4. LEUPROLIDE ACETATE [Concomitant]
  5. BICALUTAMIDE [Concomitant]

REACTIONS (3)
  - HEPATIC STEATOSIS [None]
  - HEPATITIS [None]
  - RHABDOMYOLYSIS [None]
